FAERS Safety Report 17661727 (Version 1)
Quarter: 2020Q2

REPORT INFORMATION
  Report Type: Spontaneous
  Country: SE (occurrence: SE)
  Receive Date: 20200413
  Receipt Date: 20200413
  Transmission Date: 20200713
  Serious: Yes (Other)
  Sender: FDA-Public Use
  Company Number: SE-BAUSCH-BL-2020-010395

PATIENT
  Age: 65 Year
  Sex: Female

DRUGS (1)
  1. METFORMIN HCL [Suspect]
     Active Substance: METFORMIN HYDROCHLORIDE
     Indication: DIABETES MELLITUS
     Dosage: ONE TABLET IN THE MORNING AND ONE IN THE EVENING
     Route: 065
     Dates: start: 2007

REACTIONS (4)
  - Blood glucose fluctuation [Unknown]
  - Tonsillar hypertrophy [Recovered/Resolved]
  - Arthralgia [Not Recovered/Not Resolved]
  - Tremor [Unknown]
